FAERS Safety Report 6608422-5 (Version None)
Quarter: 2010Q1

REPORT INFORMATION
  Report Type: 
  Country: None (occurrence: None)
  Receive Date: 20100301
  Receipt Date: 20100223
  Transmission Date: 20100710
  Serious: Yes (Other)
  Sender: FDA-Public Use
  Company Number: CA-ELI_LILLY_AND_COMPANY-CA201002006265

PATIENT
  Sex: Female

DRUGS (5)
  1. HUMULIN 70/30 [Suspect]
  2. METFORMIN HYDROCHLORIDE [Concomitant]
     Dosage: 500 MG, 2/D
  3. DIOVAN [Concomitant]
     Dosage: 160 MG, DAILY (1/D)
  4. RABEPRAZOLE SODIUM [Concomitant]
     Dosage: 20 MG, DAILY (1/D)
  5. HYDROCHLOROTHIAZIDE [Concomitant]
     Dosage: 250 MG, DAILY (1/D)

REACTIONS (1)
  - HIP FRACTURE [None]
